APPROVED DRUG PRODUCT: CLOBETASOL PROPIONATE
Active Ingredient: CLOBETASOL PROPIONATE
Strength: 0.05%
Dosage Form/Route: CREAM;TOPICAL
Application: A211207 | Product #001
Applicant: CHARTWELL RX SCIENCES LLC
Approved: Mar 26, 2021 | RLD: No | RS: No | Type: DISCN